FAERS Safety Report 7653284-0 (Version None)
Quarter: 2011Q3

REPORT INFORMATION
  Report Type: 
  Country: None (occurrence: None)
  Receive Date: 20110803
  Receipt Date: 20110727
  Transmission Date: 20111222
  Serious: Yes (Death, Other)
  Sender: FDA-Public Use
  Company Number: DE-CELGENEUS-062-21880-11072977

PATIENT
  Age: 50 Year
  Sex: Male
  Weight: 75 kg

DRUGS (1)
  1. REVLIMID [Suspect]
     Indication: NON-HODGKIN'S LYMPHOMA
     Route: 048

REACTIONS (3)
  - BONE MARROW FAILURE [None]
  - SEPSIS [None]
  - NON-HODGKIN'S LYMPHOMA RECURRENT [None]
